FAERS Safety Report 8299815-1 (Version None)
Quarter: 2012Q2

REPORT INFORMATION
  Report Type: 
  Country: None (occurrence: None)
  Receive Date: 20120419
  Receipt Date: 20120419
  Transmission Date: 20120825
  Serious: Yes (Other)
  Sender: FDA-Public Use
  Company Number: None

PATIENT
  Sex: Male
  Weight: 68.038 kg

DRUGS (2)
  1. ASACOL [Concomitant]
     Route: 048
  2. PURINETHOL [Suspect]
     Indication: CROHN'S DISEASE
     Dosage: 50.0 MG
     Route: 048
     Dates: start: 19920101, end: 20050115

REACTIONS (1)
  - HEPATOSPLENIC T-CELL LYMPHOMA [None]
